FAERS Safety Report 6388115-2 (Version None)
Quarter: 2009Q4

REPORT INFORMATION
  Report Type: 
  Country: None (occurrence: None)
  Receive Date: 20091001
  Receipt Date: 20091001
  Transmission Date: 20100525
  Serious: No
  Sender: FDA-Public Use
  Company Number: None

PATIENT
  Age: 68 Year
  Sex: Male
  Weight: 74.3899 kg

DRUGS (1)
  1. LEVAQUIN [Suspect]
     Indication: ARTHROPOD BITE
     Dosage: 2 TABLETS 2X
     Dates: start: 20090808, end: 20090815

REACTIONS (2)
  - ATROPHY [None]
  - TENDON DISORDER [None]
